FAERS Safety Report 15468339 (Version 3)
Quarter: 2018Q4

REPORT INFORMATION
  Report Type: Report from Study
  Country: DE (occurrence: DE)
  Receive Date: 20181005
  Receipt Date: 20181205
  Transmission Date: 20190204
  Serious: Yes (Other)
  Sender: FDA-Public Use
  Company Number: PHHY2018DE116592

PATIENT
  Sex: Female
  Weight: 66 kg

DRUGS (15)
  1. DYTIDE [Concomitant]
     Active Substance: BENZTHIAZIDE\TRIAMTERENE
     Indication: PROPHYLAXIS
     Dosage: 1 DF, QD
     Route: 065
     Dates: start: 20170522, end: 20170529
  2. SATIVEX [Concomitant]
     Active Substance: NABIXIMOLS
     Indication: NEURALGIA
     Dosage: 5 OT (PUFF), QD
     Route: 065
     Dates: start: 20160923
  3. POTASSIUM [Concomitant]
     Active Substance: POTASSIUM
     Indication: PRODUCT USED FOR UNKNOWN INDICATION
     Dosage: 1 DF, QD
     Route: 065
     Dates: start: 20170522, end: 20170529
  4. METHYLPREDNISOLONE. [Concomitant]
     Active Substance: METHYLPREDNISOLONE
     Indication: MULTIPLE SCLEROSIS RELAPSE
     Dosage: 1000 MG, UNK
     Route: 065
     Dates: start: 20170522, end: 20170526
  5. L-THYROXIN [Concomitant]
     Active Substance: LEVOTHYROXINE SODIUM
     Indication: HYPOTHYROIDISM
     Dosage: 75 MG, QD
     Route: 065
     Dates: start: 20160419
  6. CLEXANE [Concomitant]
     Active Substance: ENOXAPARIN SODIUM
     Indication: THROMBOSIS PROPHYLAXIS
     Dosage: 40 MG, UNK
     Route: 065
     Dates: start: 20170522, end: 20170526
  7. GILENYA [Suspect]
     Active Substance: FINGOLIMOD HYDROCHLORIDE
     Indication: MULTIPLE SCLEROSIS
     Dosage: 0.5 MG, QD
     Route: 048
     Dates: start: 20161026
  8. PREVIVA SANOL [Concomitant]
     Indication: CONTRACEPTION
     Dosage: UNK UNK, QD
     Route: 065
     Dates: start: 20140128
  9. LYSINE [Concomitant]
     Active Substance: LYSINE
     Indication: PROPHYLAXIS
     Dosage: 1000 MG, QD
     Route: 065
     Dates: start: 20170104
  10. PANTOPRAZOLE [Concomitant]
     Active Substance: PANTOPRAZOLE
     Dosage: 40 MG, UNK
     Route: 065
     Dates: start: 20180423, end: 20180427
  11. METHYLPREDNISOLONE. [Concomitant]
     Active Substance: METHYLPREDNISOLONE
     Dosage: 1000 MG, UNK
     Route: 065
     Dates: start: 20180423, end: 20180427
  12. CLEXANE [Concomitant]
     Active Substance: ENOXAPARIN SODIUM
     Dosage: 40 MG, UNK
     Route: 065
     Dates: start: 20180423, end: 20180427
  13. DYTIDE [Concomitant]
     Active Substance: BENZTHIAZIDE\TRIAMTERENE
     Dosage: UNK
     Route: 065
     Dates: start: 20180423, end: 20180427
  14. CETIRIZIN [Concomitant]
     Active Substance: CETIRIZINE HYDROCHLORIDE
     Indication: SEASONAL ALLERGY
     Dosage: UNK UNK, PRN
     Route: 065
     Dates: start: 20150408
  15. PANTOPRAZOLE [Concomitant]
     Active Substance: PANTOPRAZOLE
     Indication: PROPHYLAXIS
     Dosage: 40 MG, UNK
     Route: 065
     Dates: start: 20170522, end: 20170526

REACTIONS (1)
  - Cervical dysplasia [Not Recovered/Not Resolved]

NARRATIVE: CASE EVENT DATE: 20170719
